FAERS Safety Report 8474264-1 (Version None)
Quarter: 2012Q2

REPORT INFORMATION
  Report Type: 
  Country: None (occurrence: None)
  Receive Date: 20120622
  Receipt Date: 20120622
  Transmission Date: 20120825
  Serious: Yes (Other)
  Sender: FDA-Public Use
  Company Number: None

PATIENT
  Age: 68 Year
  Sex: Male
  Weight: 82.1011 kg

DRUGS (2)
  1. AZATHIOPRINE [Suspect]
     Indication: COLITIS ULCERATIVE
     Dosage: 50 MG 2 TABS PER DAY 50 4 TABS PER DAY
     Dates: start: 20120509, end: 20120517
  2. AZATHIOPRINE [Suspect]
     Indication: COLITIS ULCERATIVE
     Dosage: 50 MG 2 TABS PER DAY 50 4 TABS PER DAY
     Dates: start: 20120608, end: 20120608

REACTIONS (10)
  - HEADACHE [None]
  - MUSCULAR WEAKNESS [None]
  - HYPERSOMNIA [None]
  - CHILLS [None]
  - DIARRHOEA [None]
  - LETHARGY [None]
  - MALAISE [None]
  - HOT FLUSH [None]
  - FATIGUE [None]
  - VOMITING [None]
